FAERS Safety Report 4735269-7 (Version None)
Quarter: 2005Q3

REPORT INFORMATION
  Report Type: 
  Country: None (occurrence: None)
  Receive Date: 20050802
  Receipt Date: 20050722
  Transmission Date: 20060218
  Serious: Yes (Hospitalization, Other)
  Sender: FDA-Public Use
  Company Number: 2005-0008560

PATIENT
  Sex: Male

DRUGS (8)
  1. TRUVADA [Suspect]
     Dosage: SEE IMAGE
     Dates: start: 20050303, end: 20050607
  2. TRUVADA [Suspect]
     Dosage: SEE IMAGE
     Dates: start: 20050608, end: 20050625
  3. TRUVADA [Suspect]
     Dosage: SEE IMAGE
     Dates: start: 20050626, end: 20050701
  4. AMBISOME [Suspect]
     Indication: MENINGITIS CRYPTOCOCCAL
     Dates: start: 20050608
  5. ATAZANAVIR (ATAZANAVIR) [Concomitant]
  6. RITONAVIR (RITONAVIR) [Concomitant]
  7. EFAVIRENZ [Concomitant]
  8. AMPHOTERICIN B [Concomitant]

REACTIONS (3)
  - BLOOD CREATININE INCREASED [None]
  - HEADACHE [None]
  - MENINGITIS CRYPTOCOCCAL [None]
